FAERS Safety Report 5727521-3 (Version None)
Quarter: 2008Q2

REPORT INFORMATION
  Report Type: 
  Country: None (occurrence: None)
  Receive Date: 20080505
  Receipt Date: 20080421
  Transmission Date: 20081010
  Serious: Yes (Hospitalization)
  Sender: FDA-Public Use
  Company Number: FR-GENENTECH-259990

PATIENT
  Sex: Male
  Weight: 54 kg

DRUGS (8)
  1. BEVACIZUMAB [Suspect]
     Indication: NON-SMALL CELL LUNG CANCER
     Dosage: 405 MG, Q3W
     Route: 042
     Dates: start: 20080227
  2. CISPLATIN [Suspect]
     Indication: NON-SMALL CELL LUNG CANCER
     Dosage: 122 MG, Q3W
     Route: 042
     Dates: start: 20080227
  3. GEMCITABINE [Suspect]
     Indication: NON-SMALL CELL LUNG CANCER
     Dosage: 2037 MG, Q3W
     Route: 042
     Dates: start: 20080227
  4. SEROPRAM [Concomitant]
     Indication: DRUG USE FOR UNKNOWN INDICATION
  5. ATARAX [Concomitant]
     Indication: DRUG USE FOR UNKNOWN INDICATION
  6. XANAX [Concomitant]
     Indication: DRUG USE FOR UNKNOWN INDICATION
  7. DUPHALAC [Concomitant]
     Indication: DRUG USE FOR UNKNOWN INDICATION
  8. TRAMADOL HCL [Concomitant]
     Indication: DRUG USE FOR UNKNOWN INDICATION

REACTIONS (1)
  - UNEVALUABLE EVENT [None]
